FAERS Safety Report 11632132 (Version 1)
Quarter: 2015Q4

REPORT INFORMATION
  Report Type: Spontaneous
  Country: US (occurrence: US)
  Receive Date: 20151015
  Receipt Date: 20151015
  Transmission Date: 20160304
  Serious: No
  Sender: FDA-Public Use
  Company Number: US-MYLANLABS-2015M1032099

PATIENT
  Sex: Female
  Weight: 90.7 kg

DRUGS (4)
  1. MIACALCIN [Suspect]
     Active Substance: CALCITONIN SALMON
     Indication: OSTEOPENIA
     Dosage: 1 DF, QD
     Route: 045
  2. LEVOTHYROXINE. [Concomitant]
     Active Substance: LEVOTHYROXINE
     Dosage: UNK
  3. LISINOPRIL. [Concomitant]
     Active Substance: LISINOPRIL
     Dosage: UNK
  4. CALCITONIN SALMON. [Suspect]
     Active Substance: CALCITONIN SALMON
     Indication: OSTEOPENIA
     Dosage: 1 DF, QD
     Route: 045
     Dates: end: 2014

REACTIONS (2)
  - Fall [Unknown]
  - Osteoporosis [Unknown]
